FAERS Safety Report 8399667-5 (Version None)
Quarter: 2012Q2

REPORT INFORMATION
  Report Type: 
  Country: None (occurrence: None)
  Receive Date: 20120323
  Receipt Date: 20111017
  Transmission Date: 20120825
  Serious: Yes (Other)
  Sender: FDA-Public Use
  Company Number: 163-21880-11072336

PATIENT
  Age: 49 Year
  Sex: Male
  Weight: 78.4723 kg

DRUGS (9)
  1. DECADRON [Concomitant]
  2. REVLIMID [Suspect]
     Indication: MULTIPLE MYELOMA
     Dosage: 10 MG, 1 IN 1 D, PO, 10 MQ, 0 14 OF 21 DAYS, PO
     Route: 048
     Dates: start: 20101206
  3. REVLIMID [Suspect]
     Indication: MULTIPLE MYELOMA
     Dosage: 10 MG, 1 IN 1 D, PO, 10 MQ, 0 14 OF 21 DAYS, PO
     Route: 048
     Dates: start: 20110501, end: 20110816
  4. NEURONTIN [Concomitant]
  5. COUMADIN [Concomitant]
  6. VITAMIN D (ERGOCALCIFEROL)(UNKNOWN) [Concomitant]
  7. NEXIUM [Concomitant]
  8. SURFAK (DOCUSATE CALCIUM)(UNKNOWN) [Concomitant]
  9. AMBIEN [Concomitant]

REACTIONS (2)
  - FULL BLOOD COUNT DECREASED [None]
  - MALAISE [None]
